FAERS Safety Report 8206682-0 (Version None)
Quarter: 2012Q1

REPORT INFORMATION
  Report Type: 
  Country: None (occurrence: None)
  Receive Date: 20120314
  Receipt Date: 20120308
  Transmission Date: 20120608
  Serious: No
  Sender: FDA-Public Use
  Company Number: US-BIOGENIDEC-2011BI039582

PATIENT
  Sex: Female

DRUGS (1)
  1. TYSABRI [Suspect]
     Indication: MULTIPLE SCLEROSIS
     Route: 042
     Dates: start: 20110506

REACTIONS (24)
  - WEIGHT INCREASED [None]
  - PAIN [None]
  - PAIN IN EXTREMITY [None]
  - DYSSTASIA [None]
  - GAIT DISTURBANCE [None]
  - MOBILITY DECREASED [None]
  - GENERAL SYMPTOM [None]
  - DIZZINESS [None]
  - PYREXIA [None]
  - PERONEAL NERVE PALSY [None]
  - NAUSEA [None]
  - ASTHENIA [None]
  - DYSPNOEA [None]
  - VOMITING [None]
  - HEADACHE [None]
  - BURNING SENSATION [None]
  - PARAESTHESIA [None]
  - THINKING ABNORMAL [None]
  - GRANULOMA ANNULARE [None]
  - RASH GENERALISED [None]
  - SENSATION OF HEAVINESS [None]
  - FEAR [None]
  - DIAPHRAGMATIC DISORDER [None]
  - MUSCLE SPASMS [None]
